FAERS Safety Report 12616135 (Version 1)
Quarter: 2016Q3

REPORT INFORMATION
  Report Type: Spontaneous
  Country: US (occurrence: US)
  Receive Date: 20160802
  Receipt Date: 20160802
  Transmission Date: 20161109
  Serious: Yes (Other)
  Sender: FDA-Public Use
  Company Number: US-ASTRAZENECA-2016SE80594

PATIENT
  Age: 58 Year
  Sex: Female

DRUGS (8)
  1. CHONDROITIN SULFATE W GLUCOSAMINE [Concomitant]
     Indication: ARTHRITIS
     Dates: start: 20150521
  2. INVOKAMET [Suspect]
     Active Substance: CANAGLIFLOZIN\METFORMIN HYDROCHLORIDE
     Indication: TYPE 2 DIABETES MELLITUS
     Dosage: 50/1000 MG, ONCE DAILY
     Route: 048
     Dates: start: 20160317
  3. AMLODIPINE [Concomitant]
     Active Substance: AMLODIPINE BESYLATE
     Indication: HYPERTENSION
     Dates: start: 20150521
  4. XIGDUO XR [Suspect]
     Active Substance: DAPAGLIFLOZIN PROPANEDIOL\METFORMIN HYDROCHLORIDE
     Indication: DIABETES MELLITUS
     Dosage: 5/500, DAILY
     Route: 048
     Dates: start: 20160317
  5. OXAPROZIN. [Concomitant]
     Active Substance: OXAPROZIN
     Indication: ARTHRITIS
     Dates: start: 20150521
  6. MOBIC [Concomitant]
     Active Substance: MELOXICAM
     Indication: HYPERTENSION
     Dates: start: 20150521
  7. GABAPENTIN. [Concomitant]
     Active Substance: GABAPENTIN
     Indication: NEUROPATHY PERIPHERAL
     Dates: start: 20160411
  8. CHLORTALIDONE [Concomitant]
     Active Substance: CHLORTHALIDONE
     Indication: HYPERTENSION
     Dates: start: 20150521

REACTIONS (2)
  - Weight decreased [Unknown]
  - Urinary tract infection [Recovered/Resolved]
